FAERS Safety Report 12105597 (Version 1)
Quarter: 2016Q1

REPORT INFORMATION
  Report Type: Spontaneous
  Country: US (occurrence: US)
  Receive Date: 20160223
  Receipt Date: 20160223
  Transmission Date: 20160526
  Serious: Yes (Hospitalization)
  Sender: FDA-Public Use
  Company Number: US-LPDUSPRD-20160135

PATIENT
  Age: 30 Year
  Sex: Male

DRUGS (1)
  1. LEVETIRACETAM INJECTION (0517-3605-01) [Suspect]
     Active Substance: LEVETIRACETAM
     Dosage: DOSE NOT PROVIDED
     Route: 065

REACTIONS (1)
  - Rhabdomyolysis [Recovered/Resolved]
